FAERS Safety Report 13036744 (Version 1)
Quarter: 2016Q4

REPORT INFORMATION
  Report Type: Spontaneous
  Country: US (occurrence: US)
  Receive Date: 20161216
  Receipt Date: 20161216
  Transmission Date: 20170207
  Serious: No
  Sender: FDA-Public Use
  Company Number: US-PERRIGO-16US020974

PATIENT
  Age: 42 Year
  Sex: Female
  Weight: 63.95 kg

DRUGS (1)
  1. TIOCONAZOLE. [Suspect]
     Active Substance: TIOCONAZOLE
     Indication: VULVOVAGINAL MYCOTIC INFECTION
     Dosage: UNKNOWN, SINGLE
     Route: 067
     Dates: start: 20161013, end: 20161013

REACTIONS (1)
  - Underdose [Recovered/Resolved]

NARRATIVE: CASE EVENT DATE: 20161013
